FAERS Safety Report 7498548-9 (Version None)
Quarter: 2011Q2

REPORT INFORMATION
  Report Type: 
  Country: None (occurrence: None)
  Receive Date: 20110524
  Receipt Date: 20091122
  Transmission Date: 20111010
  Serious: Yes (Death, Hospitalization, Other)
  Sender: FDA-Public Use
  Company Number: US-BAYER-200940300NA

PATIENT
  Age: 83 Year
  Sex: Female
  Weight: 71 kg

DRUGS (18)
  1. VERSED [Concomitant]
     Dosage: UNK
     Dates: start: 20050829
  2. REQUIP [Concomitant]
  3. ACETYLSALICYLIC ACID SRT [Concomitant]
  4. ZINACEF [Concomitant]
     Dosage: 1.5 G, UNK
     Dates: start: 20050829
  5. NORVASC [Concomitant]
     Dosage: UNK
  6. CLONAZEPAM [Concomitant]
     Dosage: UNK
  7. VANCOMYCIN [Concomitant]
     Dosage: UNK
     Dates: start: 20050829
  8. FENTANYL [Concomitant]
     Dosage: UNK
     Dates: start: 20050829
  9. THROMBIN LOCAL SOLUTION [Concomitant]
     Dosage: 10000 U, UNK
     Dates: start: 20050829
  10. EPINEPHRINE [Concomitant]
     Dosage: UNK
     Dates: start: 20050829
  11. HEPARIN [Concomitant]
     Dosage: 21000 U, PER PUMP
     Dates: start: 20050829
  12. CELEXA [Concomitant]
  13. ZOCOR [Concomitant]
  14. TRASYLOL [Suspect]
     Indication: CORONARY ARTERY BYPASS
     Dosage: 100 ML PUMP PRIME THEN 25ML/HR IV
     Route: 042
     Dates: start: 20050829, end: 20050829
  15. STALEVO 100 [Concomitant]
     Dosage: UNK
  16. NITROGLYCERIN [Concomitant]
     Dosage: UNK
     Dates: start: 20050829
  17. UNIVASC [Concomitant]
  18. PROTAMINE SULFATE [Concomitant]
     Dosage: 250
     Dates: start: 20050829

REACTIONS (13)
  - RENAL IMPAIRMENT [None]
  - RENAL FAILURE [None]
  - ANHEDONIA [None]
  - RENAL INJURY [None]
  - EMOTIONAL DISTRESS [None]
  - DEATH [None]
  - STRESS [None]
  - INJURY [None]
  - PAIN [None]
  - MULTI-ORGAN FAILURE [None]
  - ANXIETY [None]
  - UNEVALUABLE EVENT [None]
  - FEAR [None]
